FAERS Safety Report 9160770 (Version 1)
Quarter: 2013Q1

REPORT INFORMATION
  Report Type: Spontaneous
  Country: US (occurrence: US)
  Receive Date: 20130313
  Receipt Date: 20130313
  Transmission Date: 20140127
  Serious: No
  Sender: FDA-Public Use
  Company Number: US-ASTRAZENECA-2013SE13579

PATIENT
  Age: 68 Year
  Sex: Female

DRUGS (1)
  1. CRESTOR [Suspect]
     Dosage: 2.5 MG, ONE HALF TABLET OF 5 MG TABLET EVERY OTHER DAY FOR 6 MONTHS
     Route: 048
     Dates: end: 20130226

REACTIONS (3)
  - Myalgia [Unknown]
  - Blood creatine phosphokinase increased [Unknown]
  - Off label use [Unknown]
